FAERS Safety Report 12089177 (Version 1)
Quarter: 2016Q1

REPORT INFORMATION
  Report Type: Spontaneous
  Country: US (occurrence: None)
  Receive Date: 20160217
  Receipt Date: 20160217
  Transmission Date: 20160526
  Serious: No
  Sender: FDA-Public Use
  Company Number: None

PATIENT
  Age: 34 Year
  Sex: Female
  Weight: 46.27 kg

DRUGS (4)
  1. OMEGA FISH OIL [Concomitant]
     Active Substance: FISH OIL\OMEGA-3 FATTY ACIDS
  2. INCOBOTULINUMTOXINA [Suspect]
     Active Substance: INCOBOTULINUMTOXINA
     Indication: SKIN WRINKLING
     Dosage: 20 CC (UNITS) AS NEEDED INTO THE MUSCLE
     Route: 030
     Dates: start: 20160211
  3. MELATONIN [Concomitant]
     Active Substance: MELATONIN
  4. MULTI VITAMIN [Concomitant]
     Active Substance: VITAMINS

REACTIONS (10)
  - Lethargy [None]
  - Influenza like illness [None]
  - Malaise [None]
  - Lymphadenopathy [None]
  - Fatigue [None]
  - Myalgia [None]
  - Speech disorder [None]
  - Dysphagia [None]
  - Muscular weakness [None]
  - Oropharyngeal pain [None]

NARRATIVE: CASE EVENT DATE: 20160211
